FAERS Safety Report 7183051-6 (Version None)
Quarter: 2010Q4

REPORT INFORMATION
  Report Type: 
  Country: None (occurrence: None)
  Receive Date: 20101222
  Receipt Date: 20101216
  Transmission Date: 20110411
  Serious: Yes (Hospitalization)
  Sender: FDA-Public Use
  Company Number: US-PFIZER INC-2010174551

PATIENT
  Sex: Female

DRUGS (1)
  1. CELEBREX [Suspect]
     Indication: ARTHRITIS

REACTIONS (1)
  - COLITIS ISCHAEMIC [None]
